FAERS Safety Report 9736465 (Version 2)
Quarter: 2013Q4

REPORT INFORMATION
  Report Type: Spontaneous
  Country: DE (occurrence: DE)
  Receive Date: 20131206
  Receipt Date: 20131220
  Transmission Date: 20140711
  Serious: Yes (Other)
  Sender: FDA-Public Use
  Company Number: DE-ASTELLAS-2013EU010813

PATIENT
  Age: 61 Year
  Sex: Female
  Weight: 57 kg

DRUGS (4)
  1. VESIKUR [Suspect]
     Indication: MICTURITION URGENCY
     Dosage: UNK
     Route: 048
     Dates: start: 20131028, end: 20131108
  2. TERBINAFIN [Suspect]
     Indication: NAIL CANDIDA
     Dosage: UNK
     Route: 065
     Dates: start: 20130820, end: 20131030
  3. AMLODIPIN                          /00972401/ [Concomitant]
     Dosage: UNK
     Route: 065
  4. TROXERUTIN [Concomitant]
     Dosage: UNK
     Route: 065

REACTIONS (3)
  - Dry mouth [Recovered/Resolved]
  - Ageusia [Recovered/Resolved]
  - Dysgeusia [Recovered/Resolved]
